FAERS Safety Report 14733639 (Version 3)
Quarter: 2018Q2

REPORT INFORMATION
  Report Type: Report from Study
  Country: US (occurrence: US)
  Receive Date: 20180409
  Receipt Date: 20180629
  Transmission Date: 20180711
  Serious: Yes (Hospitalization)
  Sender: FDA-Public Use
  Company Number: US-MYLANLABS-2018M1021425

PATIENT
  Age: 70 Year
  Sex: Male
  Weight: 76.2 kg

DRUGS (32)
  1. PREDNISONE. [Suspect]
     Active Substance: PREDNISONE
     Dosage: 70 MG, QD
     Route: 048
     Dates: start: 20180126, end: 20180129
  2. METHYLPREDISOLONE [Suspect]
     Active Substance: METHYLPREDNISOLONE
     Indication: ACUTE GRAFT VERSUS HOST DISEASE
     Dosage: 31 MG, TID
     Route: 042
     Dates: start: 20171220, end: 20180106
  3. HYDROMORPHONE [Concomitant]
     Active Substance: HYDROMORPHONE
     Indication: PRODUCT USED FOR UNKNOWN INDICATION
     Dosage: UNK
     Dates: start: 20180129
  4. PREDNISONE. [Suspect]
     Active Substance: PREDNISONE
     Dosage: 55 MG, QD
     Dates: start: 20180126, end: 20180205
  5. PREDNISONE. [Suspect]
     Active Substance: PREDNISONE
     Dosage: 35 MG, QD
     Route: 048
     Dates: start: 20180225, end: 20180301
  6. PREDNISONE. [Suspect]
     Active Substance: PREDNISONE
     Dosage: 20 MG, QD
     Route: 048
     Dates: start: 20180302, end: 20180305
  7. METOPROLOL. [Concomitant]
     Active Substance: METOPROLOL
     Indication: PRODUCT USED FOR UNKNOWN INDICATION
     Dosage: UNK
     Dates: start: 20180125
  8. PREDNISONE. [Suspect]
     Active Substance: PREDNISONE
     Dosage: 55 MG, QD
     Dates: start: 20180130
  9. METHYLPREDISOLONE [Suspect]
     Active Substance: METHYLPREDNISOLONE
     Dosage: 75 MG, QD
     Dates: start: 20180107, end: 20180115
  10. TACROLIMUS. [Concomitant]
     Active Substance: TACROLIMUS
     Indication: PRODUCT USED FOR UNKNOWN INDICATION
     Dosage: UNK
     Dates: start: 20180104
  11. URSODIOL. [Concomitant]
     Active Substance: URSODIOL
     Indication: PRODUCT USED FOR UNKNOWN INDICATION
     Dosage: UNK
     Dates: start: 20171227
  12. SUCRALFATE. [Concomitant]
     Active Substance: SUCRALFATE
     Indication: PRODUCT USED FOR UNKNOWN INDICATION
     Dosage: UNK
     Dates: start: 20171228
  13. PREDNISONE. [Suspect]
     Active Substance: PREDNISONE
     Dosage: (ALTERNATE 35 MG/ 20 MG), QD
     Route: 048
     Dates: start: 20180213, end: 20180218
  14. PREDNISONE. [Suspect]
     Active Substance: PREDNISONE
     Dosage: 10 MG, QD
     Route: 048
     Dates: start: 20180306, end: 20180309
  15. METHYLPREDISOLONE [Suspect]
     Active Substance: METHYLPREDNISOLONE
     Dosage: 75 MG, QD
     Route: 042
     Dates: start: 20180104, end: 20180106
  16. METHYLPREDISOLONE [Suspect]
     Active Substance: METHYLPREDNISOLONE
     Dosage: 56.26 MG, QD
     Route: 042
     Dates: start: 20180119, end: 20180125
  17. LACTOBACILLUS RHAMNOSUS [Concomitant]
     Active Substance: LACTOBACILLUS RHAMNOSUS
     Indication: PRODUCT USED FOR UNKNOWN INDICATION
     Dosage: UNK
     Dates: start: 20180110
  18. PREDNISONE. [Suspect]
     Active Substance: PREDNISONE
     Dosage: 35 MG, QD
     Route: 048
     Dates: start: 20180206, end: 20180212
  19. INVESTIGATIONAL DRUG [Suspect]
     Active Substance: INVESTIGATIONAL PRODUCT
     Indication: GRAFT VERSUS HOST DISEASE
     Dosage: 10 MG, BID
     Route: 048
     Dates: start: 20171228
  20. CEFPODOXIME PROXETIL. [Concomitant]
     Active Substance: CEFPODOXIME PROXETIL
     Indication: PRODUCT USED FOR UNKNOWN INDICATION
     Dosage: UNK
     Dates: start: 20180215
  21. PREDNISONE. [Suspect]
     Active Substance: PREDNISONE
     Indication: GRAFT VERSUS HOST DISEASE
     Dosage: 90 MG, QD
     Route: 048
     Dates: start: 20180116, end: 20180118
  22. PENTAMIDINE [Concomitant]
     Active Substance: PENTAMIDINE
     Indication: PRODUCT USED FOR UNKNOWN INDICATION
     Dosage: UNK
     Dates: start: 20180103
  23. ESCITALOPRAM OXALATE. [Concomitant]
     Active Substance: ESCITALOPRAM OXALATE
     Indication: PRODUCT USED FOR UNKNOWN INDICATION
     Dosage: UNK
     Dates: start: 20180219
  24. PREDNISONE. [Suspect]
     Active Substance: PREDNISONE
     Dosage: 70 MG, QD
     Route: 048
     Dates: start: 20180119, end: 20180119
  25. PREDNISONE. [Suspect]
     Active Substance: PREDNISONE
     Dosage: (ALTERNATE 35 MG/ 20 MG), QD
     Route: 048
     Dates: start: 20180219, end: 20180224
  26. PREDNISONE. [Suspect]
     Active Substance: PREDNISONE
     Dosage: 5 MG, QD
     Route: 048
     Dates: start: 20180310, end: 20180312
  27. MICAFUNGIN [Concomitant]
     Active Substance: MICAFUNGIN
     Indication: PRODUCT USED FOR UNKNOWN INDICATION
     Dosage: UNK
     Dates: start: 20171219, end: 20180226
  28. FUROSEMIDE. [Concomitant]
     Active Substance: FUROSEMIDE
     Indication: PRODUCT USED FOR UNKNOWN INDICATION
     Dosage: UNK
     Dates: start: 20180122
  29. ONDANSETRON [Concomitant]
     Active Substance: ONDANSETRON
     Indication: PRODUCT USED FOR UNKNOWN INDICATION
     Dosage: UNK
     Dates: start: 20180129
  30. PANTOPRAZOLE [Concomitant]
     Active Substance: PANTOPRAZOLE
     Indication: PRODUCT USED FOR UNKNOWN INDICATION
     Dosage: UNK
     Dates: start: 20180129
  31. METHYLPREDISOLONE [Suspect]
     Active Substance: METHYLPREDNISOLONE
     Dosage: 93.75 MG, QD
     Route: 042
     Dates: start: 20171228, end: 20180103
  32. VALGANCICLOVIR. [Concomitant]
     Active Substance: VALGANCICLOVIR
     Indication: PRODUCT USED FOR UNKNOWN INDICATION
     Dosage: UNK
     Dates: start: 20180207, end: 20180312

REACTIONS (3)
  - Condition aggravated [Recovering/Resolving]
  - Enterococcal infection [Recovered/Resolved]
  - Encephalopathy [Recovered/Resolved]

NARRATIVE: CASE EVENT DATE: 20180225
